FAERS Safety Report 18644849 (Version 1)
Quarter: 2020Q4

REPORT INFORMATION
  Report Type: Report from Study
  Country: CA (occurrence: CA)
  Receive Date: 20201221
  Receipt Date: 20201221
  Transmission Date: 20210114
  Serious: Yes (Other)
  Sender: FDA-Public Use
  Company Number: CA-BIOGEN-2020BI00952787

PATIENT
  Age: 33 Year
  Sex: Female

DRUGS (3)
  1. TECFIDERA [Suspect]
     Active Substance: DIMETHYL FUMARATE
     Indication: MULTIPLE SCLEROSIS
     Route: 048
  2. TECFIDERA [Suspect]
     Active Substance: DIMETHYL FUMARATE
     Route: 048
     Dates: end: 20181024
  3. TECFIDERA [Suspect]
     Active Substance: DIMETHYL FUMARATE
     Dosage: MAINTENANCE DOSE
     Route: 048
     Dates: start: 20180924, end: 20181024

REACTIONS (11)
  - Multiple sclerosis relapse [Unknown]
  - Ataxia [Unknown]
  - Vertigo [Unknown]
  - Paraesthesia [Unknown]
  - Urinary tract disorder [Unknown]
  - Nervous system disorder [Unknown]
  - Relapsing-remitting multiple sclerosis [Unknown]
  - Diplopia [Unknown]
  - Treatment failure [Recovered/Resolved]
  - Myelitis [Unknown]
  - Demyelination [Unknown]

NARRATIVE: CASE EVENT DATE: 201805
